FAERS Safety Report 26141047 (Version 1)
Quarter: 2025Q4

REPORT INFORMATION
  Report Type: Spontaneous
  Country: US (occurrence: US)
  Receive Date: 20251210
  Receipt Date: 20251210
  Transmission Date: 20260119
  Serious: Yes (Death)
  Sender: MYLAN
  Company Number: US-MYLANLABS-2025M1104122

PATIENT
  Age: 76 Year
  Sex: Female

DRUGS (2)
  1. HYDROCORTISONE [Suspect]
     Active Substance: HYDROCORTISONE
     Indication: Adrenocortical carcinoma
     Dosage: UNK
  2. MITOTANE [Suspect]
     Active Substance: MITOTANE
     Indication: Adrenocortical carcinoma
     Dosage: UNK

REACTIONS (4)
  - Cushing^s syndrome [Fatal]
  - Cortisol increased [Fatal]
  - Disease progression [Fatal]
  - Drug ineffective [Fatal]
